FAERS Safety Report 8273940-3 (Version None)
Quarter: 2012Q2

REPORT INFORMATION
  Report Type: 
  Country: None (occurrence: None)
  Receive Date: 20120411
  Receipt Date: 20120330
  Transmission Date: 20120825
  Serious: No
  Sender: FDA-Public Use
  Company Number: US-B.I. PHARMACEUTICALS,INC./RIDGEFIELD-2012-BP-06043BP

PATIENT
  Sex: Female

DRUGS (4)
  1. VENTOLIN [Concomitant]
     Indication: ASTHMA
     Route: 055
     Dates: start: 20110301
  2. SPIRIVA [Suspect]
     Indication: CHRONIC OBSTRUCTIVE PULMONARY DISEASE
     Dosage: 18 MCG
     Route: 055
     Dates: start: 20120326
  3. LAMICTAL [Concomitant]
     Indication: BIPOLAR DISORDER
     Route: 048
     Dates: start: 20081201
  4. DULERA ORAL INHALATION [Concomitant]
     Indication: ASTHMA
     Dosage: 4 PUF
     Route: 055
     Dates: start: 20120201

REACTIONS (2)
  - EYE PAIN [None]
  - FATIGUE [None]
